FAERS Safety Report 6938376-3 (Version None)
Quarter: 2010Q3

REPORT INFORMATION
  Report Type: 
  Country: None (occurrence: None)
  Receive Date: 20100824
  Receipt Date: 20100813
  Transmission Date: 20110219
  Serious: Yes (Hospitalization)
  Sender: FDA-Public Use
  Company Number: DE-PFIZER INC-2009164566

PATIENT
  Age: 75 Year
  Sex: Male
  Weight: 75.5 kg

DRUGS (6)
  1. ERLOTINIB HYDROCHLORIDE [Suspect]
     Indication: NON-SMALL CELL LUNG CANCER
     Dosage: 150 MG, 1X/DAY
     Route: 048
     Dates: start: 20081012
  2. *PLACEBO [Suspect]
     Indication: NON-SMALL CELL LUNG CANCER
     Dosage: UNK MG, 1X/DAY
     Route: 048
     Dates: start: 20081012
  3. VIDISIC [Concomitant]
     Dosage: UNK
     Dates: start: 20081128
  4. BEPANTHEN CREME [Concomitant]
     Dosage: UNK
     Dates: start: 20081017
  5. UREA [Concomitant]
     Dosage: UNK
     Dates: start: 20081017
  6. FUCICORT [Concomitant]
     Dosage: UNK
     Dates: start: 20081017

REACTIONS (1)
  - PSEUDOMEMBRANOUS COLITIS [None]
